FAERS Safety Report 6727893-7 (Version None)
Quarter: 2010Q2

REPORT INFORMATION
  Report Type: 
  Country: None (occurrence: None)
  Receive Date: 20100512
  Receipt Date: 20090618
  Transmission Date: 20101027
  Serious: Yes (Disabling, Other)
  Sender: FDA-Public Use
  Company Number: APP201000165

PATIENT
  Sex: Male

DRUGS (2)
  1. PAMIDRONATE DISODIUM [Suspect]
     Indication: PROSTATE CANCER
  2. ZOMETA [Suspect]
     Indication: PROSTATE CANCER

REACTIONS (3)
  - OSTEONECROSIS [None]
  - OVERDOSE [None]
  - PAIN [None]
